FAERS Safety Report 6341944-3 (Version None)
Quarter: 2009Q3

REPORT INFORMATION
  Report Type: 
  Country: None (occurrence: None)
  Receive Date: 20090904
  Receipt Date: 20090827
  Transmission Date: 20100115
  Serious: Yes (Life-Threatening, Hospitalization, Disabling, Other)
  Sender: FDA-Public Use
  Company Number: DK-ABBOTT-09P-044-0570411-00

PATIENT
  Sex: Female
  Weight: 59 kg

DRUGS (1)
  1. HUMIRA [Suspect]
     Indication: CROHN'S DISEASE
     Route: 058
     Dates: start: 20071119, end: 20080119

REACTIONS (2)
  - BONE GIANT CELL TUMOUR [None]
  - PATHOLOGICAL FRACTURE [None]
